FAERS Safety Report 21751134 (Version 1)
Quarter: 2022Q4

REPORT INFORMATION
  Report Type: Spontaneous
  Country: CN (occurrence: CN)
  Receive Date: 20221220
  Receipt Date: 20221220
  Transmission Date: 20230112
  Serious: Yes (Other)
  Sender: FDA-Public Use
  Company Number: None

PATIENT
  Age: 50 Year
  Sex: Female
  Weight: 63 kg

DRUGS (12)
  1. CYCLOPHOSPHAMIDE [Suspect]
     Active Substance: CYCLOPHOSPHAMIDE
     Indication: Chemotherapy
     Dosage: AT 08:30, 0.7 G, QD, DILUTED WITH 250 ML OF 0.9% SODIUM CHLORIDE, THIRD CYCLE OF CHEMOTHERAPY
     Route: 041
     Dates: start: 20221202, end: 20221202
  2. CYCLOPHOSPHAMIDE [Suspect]
     Active Substance: CYCLOPHOSPHAMIDE
     Indication: Recurrent cancer
  3. CYCLOPHOSPHAMIDE [Suspect]
     Active Substance: CYCLOPHOSPHAMIDE
     Indication: Breast cancer female
  4. SODIUM CHLORIDE [Suspect]
     Active Substance: SODIUM CHLORIDE
     Indication: Medication dilution
     Dosage: AT 08:30, 250 ML, QD, USED TO DILUTE 0.7 G OF CYCLOPHOSPHAMIDE, THIRD CYCLE OF CHEMOTHERAPY
     Route: 041
     Dates: start: 20221202, end: 20221202
  5. SODIUM CHLORIDE [Suspect]
     Active Substance: SODIUM CHLORIDE
     Dosage: AT 08:30, 250 ML, QD, USED TO DILUTE 200 MG OF PACLITAXEL, THIRD CYCLE OF CHEMOTHERAPY
     Route: 041
     Dates: start: 20221202, end: 20221202
  6. DEXTROSE MONOHYDRATE [Suspect]
     Active Substance: DEXTROSE MONOHYDRATE
     Indication: Medication dilution
     Dosage: AT 08:30, 250 ML, QD, USED TO DILUTE 60 MG OF PIRARUBICIN, THIRD CYCLE OF CHEMOTHERAPY
     Route: 041
     Dates: start: 20221202, end: 20221202
  7. PIRARUBICIN HYDROCHLORIDE [Suspect]
     Active Substance: PIRARUBICIN HYDROCHLORIDE
     Indication: Chemotherapy
     Dosage: AT 08:30, 60 MG, QD, DILUTED WITH 250 ML OF GLUCOSE, THIRD CYCLE OF CHEMOTHERAPY
     Route: 041
     Dates: start: 20221202, end: 20221202
  8. PIRARUBICIN HYDROCHLORIDE [Suspect]
     Active Substance: PIRARUBICIN HYDROCHLORIDE
     Indication: Breast cancer female
  9. PIRARUBICIN HYDROCHLORIDE [Suspect]
     Active Substance: PIRARUBICIN HYDROCHLORIDE
     Indication: Recurrent cancer
  10. PACLITAXEL [Suspect]
     Active Substance: PACLITAXEL
     Indication: Chemotherapy
     Dosage: AT 08:30, 200 MG, QD, DILUTED WITH 250 ML OF 0.9% SODIUM CHLORIDE, THIRD CYCLE OF CHEMOTHERAPY
     Route: 041
     Dates: start: 20221202, end: 20221202
  11. PACLITAXEL [Suspect]
     Active Substance: PACLITAXEL
     Indication: Breast cancer female
  12. PACLITAXEL [Suspect]
     Active Substance: PACLITAXEL
     Indication: Recurrent cancer

REACTIONS (1)
  - Nausea [Recovered/Resolved]

NARRATIVE: CASE EVENT DATE: 20221203
